FAERS Safety Report 12729350 (Version 1)
Quarter: 2016Q3

REPORT INFORMATION
  Report Type: Spontaneous
  Country: JP (occurrence: JP)
  Receive Date: 20160909
  Receipt Date: 20160909
  Transmission Date: 20161109
  Serious: Yes (Other)
  Sender: FDA-Public Use
  Company Number: JP-JNJFOC-20160904854

PATIENT
  Age: 74 Year
  Sex: Male

DRUGS (4)
  1. XARELTO [Suspect]
     Active Substance: RIVAROXABAN
     Indication: CEREBROVASCULAR ACCIDENT PROPHYLAXIS
     Route: 048
     Dates: start: 20150721, end: 20160712
  2. XARELTO [Suspect]
     Active Substance: RIVAROXABAN
     Indication: ATRIAL FIBRILLATION
     Route: 048
     Dates: start: 20150721, end: 20160712
  3. ADALAT [Concomitant]
     Active Substance: NIFEDIPINE
     Route: 048
  4. DIOVAN [Concomitant]
     Active Substance: VALSARTAN
     Route: 048

REACTIONS (3)
  - Colon cancer [Unknown]
  - Iron deficiency anaemia [Unknown]
  - Myocardial infarction [Unknown]
